FAERS Safety Report 5010728-0 (Version None)
Quarter: 2006Q2

REPORT INFORMATION
  Report Type: 
  Country: None (occurrence: None)
  Receive Date: 20060525
  Receipt Date: 20060518
  Transmission Date: 20061013
  Serious: Yes (Hospitalization)
  Sender: FDA-Public Use
  Company Number: JP-AVENTIS-200611569JP

PATIENT
  Age: 73 Year
  Sex: Male

DRUGS (2)
  1. RILUTEK [Suspect]
     Indication: AMYOTROPHIC LATERAL SCLEROSIS
     Dosage: ROUTE: GASTROSTOMY TUBE
     Route: 050
     Dates: start: 20050525, end: 20050718
  2. MYONAL [Concomitant]
     Dosage: ROUTE: GASTROSTOMY TUBE
     Route: 050
     Dates: start: 20050525, end: 20050719

REACTIONS (2)
  - GASTRIC ULCER HAEMORRHAGE [None]
  - SHOCK HAEMORRHAGIC [None]
